FAERS Safety Report 4905537-4 (Version None)
Quarter: 2006Q1

REPORT INFORMATION
  Report Type: 
  Country: None (occurrence: None)
  Receive Date: 20060113
  Receipt Date: 20050706
  Transmission Date: 20060701
  Serious: Yes (Other)
  Sender: FDA-Public Use
  Company Number: HQWYE045608JUL05

PATIENT
  Sex: Female

DRUGS (2)
  1. PREMPHASE (ESTROGENS/MEDROXYPROGESTERONE, ACETATE, TABLET) [Suspect]
     Dosage: ORAL
     Route: 048
     Dates: start: 19980801
  2. CYCRIN (MEDROXYPROGESTERONE ACETATE, TABLET, ) [Suspect]

REACTIONS (1)
  - BREAST CANCER [None]
